FAERS Safety Report 9614632 (Version 1)
Quarter: 2013Q4

REPORT INFORMATION
  Report Type: Spontaneous
  Country: US (occurrence: None)
  Receive Date: 20131009
  Receipt Date: 20131009
  Transmission Date: 20140711
  Serious: No
  Sender: FDA-Public Use
  Company Number: None

PATIENT
  Age: 64 Year
  Sex: Female

DRUGS (2)
  1. CYMBALTA [Suspect]
     Dosage: 30, QD, PO
     Route: 048
     Dates: start: 20130201
  2. CYMBALTA [Suspect]
     Dosage: 60, QD, PO
     Route: 048
     Dates: start: 20130301

REACTIONS (2)
  - Paranoia [None]
  - Hallucination [None]
